FAERS Safety Report 12323158 (Version 1)
Quarter: 2016Q2

REPORT INFORMATION
  Report Type: Spontaneous
  Country: US (occurrence: US)
  Receive Date: 20160502
  Receipt Date: 20160502
  Transmission Date: 20160815
  Serious: No
  Sender: FDA-Public Use
  Company Number: US-JNJFOC-20160410421

PATIENT
  Age: 51 Year
  Sex: Male

DRUGS (8)
  1. BALSALAZIDE DISODIUM. [Concomitant]
     Active Substance: BALSALAZIDE DISODIUM
     Route: 065
  2. LEVEMIR [Concomitant]
     Active Substance: INSULIN DETEMIR
     Route: 065
  3. DHEA [Concomitant]
     Active Substance: PRASTERONE
     Route: 065
  4. NOVOLOG [Concomitant]
     Active Substance: INSULIN ASPART
     Route: 065
  5. ENTOCORT EC [Concomitant]
     Active Substance: BUDESONIDE
     Route: 065
  6. ASACOL HD [Concomitant]
     Active Substance: MESALAMINE
     Route: 065
  7. SIMPONI [Suspect]
     Active Substance: GOLIMUMAB
     Indication: COLITIS ULCERATIVE
     Route: 058
  8. ASMANEX [Concomitant]
     Active Substance: MOMETASONE FUROATE
     Route: 065

REACTIONS (2)
  - Arthralgia [Unknown]
  - Ligament sprain [Unknown]
